FAERS Safety Report 20564038 (Version 3)
Quarter: 2022Q4

REPORT INFORMATION
  Report Type: Spontaneous
  Country: JP (occurrence: JP)
  Receive Date: 20220308
  Receipt Date: 20221027
  Transmission Date: 20230113
  Serious: Yes (Hospitalization, Other)
  Sender: FDA-Public Use
  Company Number: JP-BRISTOL-MYERS SQUIBB COMPANY-BMS-2022-032181

PATIENT
  Age: 60 Year
  Sex: Male

DRUGS (9)
  1. YERVOY [Suspect]
     Active Substance: IPILIMUMAB
     Indication: Non-small cell lung cancer
     Dosage: UNKNOWN
     Route: 065
     Dates: start: 20211110
  2. YERVOY [Suspect]
     Active Substance: IPILIMUMAB
     Dosage: UNKNOWN
     Route: 065
     Dates: start: 20220104
  3. OPDIVO [Suspect]
     Active Substance: NIVOLUMAB
     Indication: Non-small cell lung cancer
     Dosage: UNKNOWN
     Route: 065
     Dates: start: 20211110
  4. OPDIVO [Suspect]
     Active Substance: NIVOLUMAB
     Dosage: UNKNOWN
     Route: 065
     Dates: start: 20211208
  5. OPDIVO [Suspect]
     Active Substance: NIVOLUMAB
     Dosage: UNKNOWN
     Route: 065
     Dates: start: 20220104
  6. CARBOPLATIN [Suspect]
     Active Substance: CARBOPLATIN
     Indication: Non-small cell lung cancer
     Dosage: UNKNOWN
     Route: 065
     Dates: start: 20211110
  7. CARBOPLATIN [Suspect]
     Active Substance: CARBOPLATIN
     Dosage: UNKNOWN
     Route: 065
     Dates: start: 20211208
  8. PACLITAXEL [Suspect]
     Active Substance: PACLITAXEL
     Indication: Non-small cell lung cancer
     Dosage: UNKNOWN
     Route: 065
     Dates: start: 20211110
  9. PACLITAXEL [Suspect]
     Active Substance: PACLITAXEL
     Dosage: UNKNOWN
     Route: 065
     Dates: start: 20211208

REACTIONS (4)
  - Malignant neoplasm progression [Unknown]
  - Nausea [Unknown]
  - Chest pain [Unknown]
  - Rash [Unknown]

NARRATIVE: CASE EVENT DATE: 20211110
